FAERS Safety Report 6134798-1 (Version None)
Quarter: 2009Q1

REPORT INFORMATION
  Report Type: 
  Country: None (occurrence: None)
  Receive Date: 20090325
  Receipt Date: 20090309
  Transmission Date: 20090719
  Serious: Yes (Life-Threatening)
  Sender: FDA-Public Use
  Company Number: 200910676DE

PATIENT

DRUGS (1)
  1. GLYBURIDE [Suspect]

REACTIONS (1)
  - RENAL FAILURE ACUTE [None]
